FAERS Safety Report 5771468-3 (Version None)
Quarter: 2008Q2

REPORT INFORMATION
  Report Type: 
  Country: None (occurrence: None)
  Receive Date: 20080613
  Receipt Date: 20080603
  Transmission Date: 20081010
  Serious: Yes (Other)
  Sender: FDA-Public Use
  Company Number: DE-AVENTIS-200713060DE

PATIENT
  Age: 67 Year
  Sex: Female
  Weight: 99 kg

DRUGS (10)
  1. CLEXANE [Suspect]
     Indication: THROMBOSIS PROPHYLAXIS
     Route: 058
     Dates: start: 20070918, end: 20070918
  2. CLEXANE [Suspect]
     Route: 058
     Dates: start: 20070919, end: 20070923
  3. CLEXANE [Suspect]
     Route: 058
     Dates: start: 20070918, end: 20070918
  4. CLEXANE [Suspect]
     Route: 058
     Dates: start: 20070919, end: 20070923
  5. VOLTAREN-XR [Concomitant]
     Dosage: DOSE: 1-0-1
     Route: 048
     Dates: start: 20070918, end: 20070928
  6. PANTOZOL                           /01263202/ [Concomitant]
     Dosage: DOSE: 1-0-0
     Route: 048
     Dates: start: 20070918, end: 20070928
  7. CONCOR                             /00802602/ [Concomitant]
     Route: 048
     Dates: start: 20070918, end: 20070928
  8. HYDROCHLOROTHIAZIDE [Concomitant]
     Route: 048
     Dates: start: 20070918, end: 20070928
  9. ACETAMINOPHEN [Concomitant]
     Route: 048
     Dates: start: 20070920, end: 20070928
  10. NOVALGIN                           /00039501/ [Concomitant]
     Dosage: DOSE: 1-1-1-1
     Route: 048
     Dates: start: 20070920, end: 20070928

REACTIONS (1)
  - PEMPHIGOID [None]
